FAERS Safety Report 9195705 (Version 2)
Quarter: 2013Q2

REPORT INFORMATION
  Report Type: Spontaneous
  Country: US (occurrence: None)
  Receive Date: 20120703
  Receipt Date: 20121031
  Transmission Date: 20140414
  Serious: No
  Sender: FDA-Public Use
  Company Number: PHEH2012US010083

PATIENT
  Age: 34 Year
  Sex: Female

DRUGS (4)
  1. GILENYA (FTY) CAPSULE, 0.5MG [Suspect]
     Indication: MULTIPLE SCLEROSIS
     Route: 048
     Dates: start: 20120509, end: 20120619
  2. PROVIGIL (MODAFINIL) [Concomitant]
  3. PROZAC (FLUOXETINE HYDROCHLORIDE) [Concomitant]
  4. ANTIALLERGIC AGENTS, EXCL CORTICOSTEROIDS (NO INGREDIENTS/SUBSTANCES) [Concomitant]

REACTIONS (9)
  - Hypoaesthesia [None]
  - Dizziness [None]
  - Dyspepsia [None]
  - Influenza like illness [None]
  - Feeling abnormal [None]
  - Throat irritation [None]
  - Myalgia [None]
  - Headache [None]
  - Productive cough [None]
